FAERS Safety Report 19289549 (Version 1)
Quarter: 2021Q2

REPORT INFORMATION
  Report Type: Spontaneous
  Country: US (occurrence: US)
  Receive Date: 20210521
  Receipt Date: 20210521
  Transmission Date: 20210717
  Serious: No
  Sender: FDA-Public Use
  Company Number: US-PFIZER INC-2021535505

PATIENT
  Age: 66 Year
  Sex: Female
  Weight: 122 kg

DRUGS (13)
  1. TRIAMCINOLONE ACETONIDE. [Concomitant]
     Active Substance: TRIAMCINOLONE ACETONIDE
     Dosage: UNK (0.1 % CREAM (GM)
  2. IBRANCE [Suspect]
     Active Substance: PALBOCICLIB
     Indication: BREAST CANCER FEMALE
     Dosage: 125 MG, CYCLIC (DAILY 21 DAYS ON, 7 DAYS OFF)
     Route: 048
     Dates: start: 20210225
  3. BUDESONIDE. [Concomitant]
     Active Substance: BUDESONIDE
     Dosage: UNK (1 MG/2 ML AMPUL?NEB)
  4. BENZONATATE. [Concomitant]
     Active Substance: BENZONATATE
     Dosage: 200 MG
  5. CALTRATE WITH VITAMIN D [Concomitant]
     Active Substance: CALCIUM CARBONATE\CHOLECALCIFEROL
     Dosage: UNK (CALTRATE 600 PLUS D3 600 MG?800 TABLET)
  6. ONE A DAY MEN^S [Concomitant]
     Active Substance: VITAMINS
     Dosage: UNK
  7. LATANOPROST. [Concomitant]
     Active Substance: LATANOPROST
     Dosage: 0.005 % (0.005 % DROPS)
  8. IBRANCE [Suspect]
     Active Substance: PALBOCICLIB
     Indication: BLADDER NEOPLASM
  9. LEVOTHYROXINE SODIUM. [Concomitant]
     Active Substance: LEVOTHYROXINE SODIUM
     Dosage: 100 UG
  10. ELIQUIS [Concomitant]
     Active Substance: APIXABAN
     Dosage: 5 MG
  11. OMEPRAZOLE. [Concomitant]
     Active Substance: OMEPRAZOLE
     Dosage: 20 MG
  12. GUAIFENESIN. [Concomitant]
     Active Substance: GUAIFENESIN
     Dosage: UNK (100 MG/5ML LIQUID)
  13. ENOXAPARIN SODIUM. [Concomitant]
     Active Substance: ENOXAPARIN SODIUM
     Dosage: UNK (ENOXAPARIN SODIUM 120MG/.8ML)

REACTIONS (2)
  - Tumour marker increased [Not Recovered/Not Resolved]
  - Neoplasm progression [Not Recovered/Not Resolved]
